FAERS Safety Report 12922522 (Version 1)
Quarter: 2016Q4

REPORT INFORMATION
  Report Type: Report from Study
  Country: US (occurrence: US)
  Receive Date: 20161109
  Receipt Date: 20161109
  Transmission Date: 20170207
  Serious: Yes (Other)
  Sender: FDA-Public Use
  Company Number: US-BRISTOL-MYERS SQUIBB COMPANY-BMS-2016-088592

PATIENT
  Sex: Male

DRUGS (3)
  1. NIVOLUMAB [Suspect]
     Active Substance: NIVOLUMAB
     Indication: LUNG NEOPLASM MALIGNANT
     Dosage: UNK
     Route: 042
     Dates: start: 20160211, end: 20160211
  2. METAMUCIL [Concomitant]
     Active Substance: PLANTAGO SEED
     Indication: PRODUCT USED FOR UNKNOWN INDICATION
     Route: 065
  3. NIVOLUMAB [Suspect]
     Active Substance: NIVOLUMAB
     Indication: PRODUCT USED FOR UNKNOWN INDICATION
     Dosage: UNK
     Route: 042
     Dates: start: 20160224

REACTIONS (10)
  - Memory impairment [Unknown]
  - Balance disorder [Unknown]
  - Fatigue [Unknown]
  - Blood glucose increased [Unknown]
  - Urinary tract infection [Recovered/Resolved]
  - Constipation [Unknown]
  - Muscular weakness [Unknown]
  - Blood glucose fluctuation [Unknown]
  - Abdominal pain upper [Unknown]
  - Nausea [Unknown]
